FAERS Safety Report 8758330 (Version 2)
Quarter: 2013Q1

REPORT INFORMATION
  Report Type: Spontaneous
  Country: BR (occurrence: BR)
  Receive Date: 20120829
  Receipt Date: 20130311
  Transmission Date: 20140127
  Serious: Yes (Hospitalization, Other)
  Sender: FDA-Public Use
  Company Number: PHHY2012BR073788

PATIENT
  Sex: Male

DRUGS (6)
  1. DIOVAN HCT [Suspect]
     Indication: BLOOD PRESSURE INADEQUATELY CONTROLLED
     Dosage: 1 DF, QD
     Route: 048
  2. TYLEX [Concomitant]
     Dosage: 1 DF, Q8H
  3. TRAMAL [Concomitant]
     Dosage: 1 DF, Q12H
  4. DIPYRONE [Concomitant]
     Dosage: 1 DF, Q6H
  5. PANTOPRAZOLE [Concomitant]
     Indication: PROPHYLAXIS
     Dosage: UNK
  6. CIPRO [Concomitant]
     Dosage: 1 DF, Q12H

REACTIONS (6)
  - Fall [Not Recovered/Not Resolved]
  - Device related infection [Not Recovered/Not Resolved]
  - Lung neoplasm malignant [Not Recovered/Not Resolved]
  - Blood pressure inadequately controlled [Not Recovered/Not Resolved]
  - Malaise [Not Recovered/Not Resolved]
  - Cold sweat [Not Recovered/Not Resolved]
